FAERS Safety Report 6098016-5 (Version None)
Quarter: 2009Q1

REPORT INFORMATION
  Report Type: 
  Country: None (occurrence: None)
  Receive Date: 20090227
  Receipt Date: 20020918
  Transmission Date: 20090719
  Serious: Yes (Disabling, Other)
  Sender: FDA-Public Use
  Company Number: JP-ASTRAZENECA-2009AP01442

PATIENT
  Age: 24203 Day
  Sex: Female

DRUGS (4)
  1. IRESSA [Suspect]
     Indication: NON-SMALL CELL LUNG CANCER
     Route: 048
     Dates: start: 20020225, end: 20020909
  2. DASEN [Concomitant]
     Indication: COUGH
     Dates: start: 20011014
  3. LOXONIN [Concomitant]
     Indication: CANCER PAIN
     Dates: start: 20011014
  4. SELBEX [Concomitant]
     Indication: GASTRITIS
     Dates: start: 20011014

REACTIONS (2)
  - ANOREXIA [None]
  - HEPATITIS [None]
